FAERS Safety Report 26146693 (Version 1)
Quarter: 2025Q4

REPORT INFORMATION
  Report Type: Spontaneous
  Country: US (occurrence: US)
  Receive Date: 20251211
  Receipt Date: 20251211
  Transmission Date: 20260117
  Serious: Yes (Hospitalization, Other)
  Sender: PFIZER
  Company Number: US-PFIZER INC-PV202500144294

PATIENT
  Age: 60 Year
  Sex: Female

DRUGS (2)
  1. ELREXFIO [Suspect]
     Active Substance: ELRANATAMAB-BCMM
     Dosage: UNK
  2. NIROGACESTAT [Suspect]
     Active Substance: NIROGACESTAT
     Dosage: UNK

REACTIONS (1)
  - Cytokine release syndrome [Unknown]
